FAERS Safety Report 19926438 (Version 2)
Quarter: 2021Q4

REPORT INFORMATION
  Report Type: Report from Study
  Country: AT (occurrence: AT)
  Receive Date: 20211006
  Receipt Date: 20211012
  Transmission Date: 20220303
  Serious: Yes (Death, Hospitalization, Other)
  Sender: FDA-Public Use
  Company Number: AT-BRISTOL-MYERS SQUIBB COMPANY-BMS-2021-102469

PATIENT
  Age: 85 Year
  Sex: Male

DRUGS (1)
  1. NIVOLUMAB [Suspect]
     Active Substance: NIVOLUMAB
     Indication: Squamous cell carcinoma of skin
     Dosage: 240 MILLIGRAM
     Route: 042
     Dates: start: 20190304, end: 20210712

REACTIONS (2)
  - Death [Fatal]
  - Fracture [Recovered/Resolved]

NARRATIVE: CASE EVENT DATE: 20210913
